FAERS Safety Report 12537441 (Version 1)
Quarter: 2016Q3

REPORT INFORMATION
  Report Type: Spontaneous
  Country: FR (occurrence: FR)
  Receive Date: 20160707
  Receipt Date: 20160707
  Transmission Date: 20161109
  Serious: Yes (Hospitalization)
  Sender: FDA-Public Use
  Company Number: FR-PFIZER INC-2016327837

PATIENT
  Age: 9 Month
  Sex: Female
  Weight: 4 kg

DRUGS (9)
  1. NEBCINE [Concomitant]
     Active Substance: TOBRAMYCIN
     Indication: RHINOVIRUS INFECTION
  2. HEPARIN [Concomitant]
     Active Substance: HEPARIN SODIUM
     Dosage: UNK
     Route: 058
     Dates: start: 20160513
  3. ZYVOXID [Suspect]
     Active Substance: LINEZOLID
     Dosage: UNK
     Route: 048
     Dates: start: 20160513, end: 20160516
  4. FORTUM [Concomitant]
     Active Substance: CEFTAZIDIME
     Indication: HUMAN BOCAVIRUS INFECTION
     Dosage: UNK
     Dates: start: 20160426, end: 20160513
  5. TRIFLUCAN [Concomitant]
     Active Substance: FLUCONAZOLE
     Indication: CANDIDA INFECTION
     Dosage: UNK
     Dates: start: 20160422
  6. FORTUM [Concomitant]
     Active Substance: CEFTAZIDIME
     Indication: RHINOVIRUS INFECTION
  7. NEBCINE [Concomitant]
     Active Substance: TOBRAMYCIN
     Indication: HUMAN BOCAVIRUS INFECTION
     Dosage: UNK
     Dates: start: 20160426, end: 20160513
  8. VANCOMYCIN [Concomitant]
     Active Substance: VANCOMYCIN
     Indication: RHINOVIRUS INFECTION
  9. VANCOMYCIN [Concomitant]
     Active Substance: VANCOMYCIN
     Indication: HUMAN BOCAVIRUS INFECTION
     Dosage: UNK
     Dates: start: 20160504, end: 20160513

REACTIONS (3)
  - Rhabdomyolysis [Recovered/Resolved]
  - Thrombocytopenia [Recovered/Resolved]
  - Blood lactic acid [Recovered/Resolved]

NARRATIVE: CASE EVENT DATE: 20160516
